FAERS Safety Report 21278701 (Version 1)
Quarter: 2022Q3

REPORT INFORMATION
  Report Type: Spontaneous
  Country: US (occurrence: US)
  Receive Date: 20220901
  Receipt Date: 20220901
  Transmission Date: 20221026
  Serious: Yes (Other)
  Sender: FDA-Public Use
  Company Number: US-BEH-2022149097

PATIENT
  Sex: Female

DRUGS (2)
  1. HIZENTRA [Suspect]
     Active Substance: HUMAN IMMUNOGLOBULIN G
     Indication: Immunodeficiency common variable
     Dosage: 10 GRAM, QW
     Route: 058
     Dates: start: 20161103
  2. UPADACITINIB [Concomitant]
     Active Substance: UPADACITINIB
     Dosage: UNK
     Dates: end: 20220628

REACTIONS (3)
  - Retinal tear [Unknown]
  - Pain [Unknown]
  - Rheumatoid arthritis [Unknown]
